FAERS Safety Report 16827988 (Version 1)
Quarter: 2019Q3

REPORT INFORMATION
  Report Type: Spontaneous
  Country: US (occurrence: US)
  Receive Date: 20190729
  Receipt Date: 20190729
  Transmission Date: 20191005
  Serious: No
  Sender: FDA-Public Use
  Company Number: None

PATIENT
  Age: 21 Year
  Sex: Female

DRUGS (1)
  1. HYDROXYPROG 250MG/ML (1ML) SDV [Suspect]
     Active Substance: HYDROXYPROGESTERONE
     Dosage: ?          OTHER FREQUENCY:OTHER;?
     Route: 030
     Dates: start: 201905

REACTIONS (3)
  - Urticaria [None]
  - Injection site induration [None]
  - Injection site pruritus [None]

NARRATIVE: CASE EVENT DATE: 20190729
